FAERS Safety Report 7482810-X (Version None)
Quarter: 2011Q2

REPORT INFORMATION
  Report Type: 
  Country: None (occurrence: None)
  Receive Date: 20110516
  Receipt Date: 20110504
  Transmission Date: 20111010
  Serious: Yes (Other)
  Sender: FDA-Public Use
  Company Number: GB-WATSON-2011-06537

PATIENT
  Age: 49 Year
  Sex: Female

DRUGS (3)
  1. OMEPRAZOLE [Suspect]
     Indication: PRODUCT USED FOR UNKNOWN INDICATION
     Dosage: 40 MG, DAILY
     Route: 048
  2. SOLUTIONS FOR PARENTERAL NUTRITION [Suspect]
     Indication: SMALL INTESTINAL RESECTION
     Dosage: UNK
  3. NORMAL SALINE [Suspect]
     Indication: SUPPLEMENTATION THERAPY
     Dosage: UNK
     Route: 042

REACTIONS (5)
  - CARBON DIOXIDE DECREASED [None]
  - HYPERCHLORAEMIA [None]
  - BLOOD BICARBONATE DECREASED [None]
  - METABOLIC ALKALOSIS [None]
  - HYPERVENTILATION [None]
